FAERS Safety Report 6862627-7 (Version None)
Quarter: 2010Q3

REPORT INFORMATION
  Report Type: 
  Country: None (occurrence: None)
  Receive Date: 20100719
  Receipt Date: 20100702
  Transmission Date: 20110219
  Serious: Yes (Hospitalization)
  Sender: FDA-Public Use
  Company Number: 7009795

PATIENT
  Age: 87 Year
  Sex: Female

DRUGS (15)
  1. LEVOTHYROXINE SODIUM [Suspect]
     Indication: HYPOTHYROIDISM
     Dosage: 1 OF (1 DF, 1 IN 1 D) ORAL
     Route: 048
     Dates: start: 20100311
  2. ADANCOR (NICORANDIL) (NICORANDIL) [Suspect]
     Indication: PRODUCT USED FOR UNKNOWN INDICATION
     Dosage: 10 MG (10 MG,1 IN 1 D) 1) ORAL
     Route: 048
     Dates: start: 20100328
  3. DOMPERIDONE (DOMPERIDONE) (10 MG) (DOMPERIDONE) [Suspect]
     Indication: VOMITING
     Dosage: 3 DF (1 DF, 3 IN 1 D)  ORAL
     Route: 048
     Dates: start: 20100305
  4. TENORMIN [Suspect]
     Indication: HYPERTENSION
     Dosage: (25 MG) ORAL
     Route: 048
     Dates: start: 20100126, end: 20100329
  5. MODOPAR(MADOPAR CAPAULE) /00349201/)  (250 MG, CAPSULE) (LEVODOPA, BEN [Suspect]
     Indication: PARKINSON'S DISEASE
     Dosage: 3 DF (1 DF, 3 IN 1 D)  ORAL
     Route: 048
     Dates: start: 20100126
  6. LYRICA (PREGABALIN) (25 MG, CAPSULE) (PREGABALIN) [Concomitant]
  7. PRAVASTATIN (PRAVASTATIN) (TABLET) (PRAVASTATIN) [Concomitant]
  8. SERESTA (OXAZEPAM) (10 MG, TABLET) (OXAZEPAM) [Concomitant]
  9. VITAMIN B1 (THIAMINE HYDROCHLORIDE) (VITAMIN B1) [Concomitant]
  10. VITAMIN B6 (PYRIDOXINE HYDROCHLORIDE) (VITAMIN B6) [Concomitant]
  11. TRANSIPEG (MACROGOL) (MACROGOL) [Concomitant]
  12. PARACETAMOL (PARACETAMOL)(1 GRAM) (PARACETAMOL) [Concomitant]
  13. LOVENOX (ENOXAPARIN SODIUM)(4000 IU (INTERNATIONAL UNIT), SOLUTION FOR [Concomitant]
  14. KARDEGIC (ACETYLSALICYLATE LYSINE) (75 MG, POWDER FOR ORAL SOLUTION)(A [Concomitant]
  15. INIPOMP(PANTOPRAZOLE)(20 MG, FILM-COATED TABLET)(PANTOPRAZOLE) [Concomitant]

REACTIONS (3)
  - ACCIDENTAL EXPOSURE [None]
  - BRADYCARDIA [None]
  - HYPOTENSION [None]
